FAERS Safety Report 4978915-5 (Version None)
Quarter: 2006Q2

REPORT INFORMATION
  Report Type: 
  Country: None (occurrence: None)
  Receive Date: 20060417
  Receipt Date: 20060403
  Transmission Date: 20061013
  Serious: Yes (Death)
  Sender: FDA-Public Use
  Company Number: 223784

PATIENT
  Age: 47 Year
  Sex: Female

DRUGS (5)
  1. MABTHERA (RITUXIMAB) CONC FOR SOLUTION FOR INFUSION [Suspect]
     Indication: RHEUMATOID ARTHRITIS
     Dosage: 500 MG, INTRAVENOUS
     Route: 042
     Dates: start: 20060323, end: 20060323
  2. METHOTREXATE [Concomitant]
  3. METHYLPREDNISOLONE [Concomitant]
  4. RIFAMPICIN [Concomitant]
  5. ISONIAZID [Concomitant]

REACTIONS (4)
  - AMYLOIDOSIS [None]
  - APNOEA [None]
  - MULTI-ORGAN FAILURE [None]
  - SEPSIS [None]
